FAERS Safety Report 24198110 (Version 2)
Quarter: 2024Q3

REPORT INFORMATION
  Report Type: Report from Study
  Country: US (occurrence: US)
  Receive Date: 20240812
  Receipt Date: 20240913
  Transmission Date: 20241017
  Serious: No
  Sender: ACADIA PHARMACEUTICALS
  Company Number: US-ACADIA PHARMACEUTICALS INC.-ACA-2024-TRF-003745

PATIENT
  Age: 4 Year
  Sex: Female

DRUGS (5)
  1. DAYBUE [Suspect]
     Active Substance: TROFINETIDE
     Indication: Rett syndrome
     Dosage: 20 MILLILITER, BID
     Route: 048
     Dates: start: 20230819
  2. DAYBUE [Suspect]
     Active Substance: TROFINETIDE
     Dosage: 20 MILLILITER, BID
     Route: 048
  3. TRILEPTAL [Concomitant]
     Active Substance: OXCARBAZEPINE
  4. OMEPRAZOLE [Concomitant]
     Active Substance: OMEPRAZOLE
  5. EPIDIOLEX [Concomitant]
     Active Substance: CANNABIDIOL

REACTIONS (3)
  - Product use complaint [Not Recovered/Not Resolved]
  - Intentional dose omission [Unknown]
  - Vomiting [Unknown]

NARRATIVE: CASE EVENT DATE: 20230801
